FAERS Safety Report 13879382 (Version 1)
Quarter: 2017Q3

REPORT INFORMATION
  Report Type: Spontaneous
  Country: FR (occurrence: FR)
  Receive Date: 20170817
  Receipt Date: 20170817
  Transmission Date: 20171127
  Serious: Yes (Hospitalization, Other)
  Sender: FDA-Public Use
  Company Number: FR-ABBVIE-17P-056-2069722-00

PATIENT
  Age: 31 Year
  Sex: Female

DRUGS (22)
  1. NIFEDIPINE MYLAN LP [Suspect]
     Active Substance: NIFEDIPINE
     Indication: THREATENED LABOUR
     Route: 065
     Dates: start: 20170420, end: 20170421
  2. ATOSIBAN SUN [Suspect]
     Active Substance: ATOSIBAN
     Route: 065
     Dates: start: 20170425, end: 20170426
  3. ATOSIBAN SUN [Suspect]
     Active Substance: ATOSIBAN
     Route: 042
     Dates: start: 20170428, end: 20170430
  4. LIDOCAINE ADRENALINE AGUETTANT [Suspect]
     Active Substance: EPINEPHRINE\LIDOCAINE
     Indication: PRODUCT USED FOR UNKNOWN INDICATION
     Route: 042
     Dates: start: 20170430, end: 20170430
  5. ATOSIBAN SUN [Suspect]
     Active Substance: ATOSIBAN
     Indication: THREATENED LABOUR
     Route: 065
     Dates: start: 20170418, end: 20170419
  6. CLOMIPRAMINE HYDROCHLORIDE. [Concomitant]
     Active Substance: CLOMIPRAMINE HYDROCHLORIDE
     Indication: PRODUCT USED FOR UNKNOWN INDICATION
     Route: 065
  7. LEVOBUPIVACAINE [Suspect]
     Active Substance: LEVOBUPIVACAINE
     Indication: ANAESTHESIA
     Route: 042
     Dates: start: 20170430, end: 20170430
  8. CLAMOXYL [Suspect]
     Active Substance: AMOXICILLIN\CLAVULANIC ACID
     Route: 048
     Dates: start: 20170425, end: 20170430
  9. CLAMOXYL [Suspect]
     Active Substance: AMOXICILLIN\CLAVULANIC ACID
     Indication: BETA HAEMOLYTIC STREPTOCOCCAL INFECTION
     Route: 065
     Dates: start: 20170413, end: 20170419
  10. SUFENTANIL [Suspect]
     Active Substance: SUFENTANIL
     Indication: ANAESTHESIA
     Route: 042
     Dates: start: 20170430, end: 20170430
  11. NALADOR [Suspect]
     Active Substance: SULPROSTONE
     Indication: UTERINE ATONY
     Route: 042
     Dates: start: 20170430, end: 20170430
  12. ONDANSETRON ACCORD [Suspect]
     Active Substance: ONDANSETRON
     Indication: PRODUCT USED FOR UNKNOWN INDICATION
     Route: 042
     Dates: start: 20170430, end: 20170430
  13. CEFAZOLINE MYLAN [Suspect]
     Active Substance: CEFAZOLIN SODIUM
     Indication: PRODUCT USED FOR UNKNOWN INDICATION
     Route: 042
     Dates: start: 20170430, end: 20170430
  14. FURADANTINE [Suspect]
     Active Substance: NITROFURANTOIN
     Indication: URINARY TRACT INFECTION
     Route: 048
     Dates: start: 20170428
  15. NIFEDIPINE MYLAN LP [Suspect]
     Active Substance: NIFEDIPINE
     Route: 048
     Dates: start: 20170426, end: 20170428
  16. NICARDIPINE AGUETTANT 10 MG/10ML [Suspect]
     Active Substance: NICARDIPINE HYDROCHLORIDE
     Indication: PRODUCT USED FOR UNKNOWN INDICATION
     Route: 042
     Dates: start: 20170430, end: 20170430
  17. ALPRAZOLAM MYLAN [Suspect]
     Active Substance: ALPRAZOLAM
     Indication: PRODUCT USED FOR UNKNOWN INDICATION
     Route: 048
     Dates: start: 20170428, end: 20170429
  18. EXACYL [Suspect]
     Active Substance: TRANEXAMIC ACID
     Indication: PRODUCT USED FOR UNKNOWN INDICATION
     Dosage: 0.5 G / 5 ML
     Route: 042
     Dates: start: 20170430, end: 20170430
  19. CIMETIDINE ARROW [Suspect]
     Active Substance: CIMETIDINE
     Indication: PRODUCT USED FOR UNKNOWN INDICATION
     Route: 048
     Dates: start: 20170430, end: 20170430
  20. MORPHINE AGUETTANT [Suspect]
     Active Substance: MORPHINE HYDROCHLORIDE
     Indication: PAIN
     Route: 042
     Dates: start: 20170430, end: 20170502
  21. NIFEDIPINE MYLAN LP [Suspect]
     Active Substance: NIFEDIPINE
     Route: 065
     Dates: start: 20170423, end: 20170424
  22. SYNTOCINON [Suspect]
     Active Substance: OXYTOCIN
     Indication: PRODUCT USED FOR UNKNOWN INDICATION
     Route: 065
     Dates: start: 20170430, end: 20170430

REACTIONS (6)
  - Altered state of consciousness [Recovered/Resolved]
  - Tachycardia [Recovered/Resolved]
  - Caesarean section [Recovered/Resolved]
  - Pancreatitis acute [Recovered/Resolved]
  - Dyspnoea [Recovered/Resolved]
  - Exposure during pregnancy [Unknown]

NARRATIVE: CASE EVENT DATE: 20170430
